FAERS Safety Report 8133799-1 (Version None)
Quarter: 2012Q1

REPORT INFORMATION
  Report Type: 
  Country: None (occurrence: None)
  Receive Date: 20120213
  Receipt Date: 20120213
  Transmission Date: 20120608
  Serious: No
  Sender: FDA-Public Use
  Company Number: None

PATIENT
  Age: 27 Year
  Sex: Female
  Weight: 68.038 kg

DRUGS (1)
  1. MIRENA [Suspect]
     Indication: CONTRACEPTION
     Dates: start: 20101015, end: 20120208

REACTIONS (11)
  - INFECTION [None]
  - DIZZINESS [None]
  - VISION BLURRED [None]
  - FEELING ABNORMAL [None]
  - DISTURBANCE IN ATTENTION [None]
  - MOOD SWINGS [None]
  - BALANCE DISORDER [None]
  - MIGRAINE [None]
  - VAGINAL HAEMORRHAGE [None]
  - AMNESIA [None]
  - HEADACHE [None]
